FAERS Safety Report 22253841 (Version 1)
Quarter: 2023Q2

REPORT INFORMATION
  Report Type: Spontaneous
  Country: NL (occurrence: NL)
  Receive Date: 20230426
  Receipt Date: 20230426
  Transmission Date: 20230721
  Serious: Yes (Other)
  Sender: FDA-Public Use
  Company Number: None

PATIENT

DRUGS (9)
  1. ANORO ELLIPTA [Suspect]
     Active Substance: UMECLIDINIUM BROMIDE\VILANTEROL TRIFENATATE
     Indication: Bronchial hyperreactivity
     Dosage: 1 DF, QD(1X IN THE MORNING)
     Route: 065
     Dates: start: 20221025
  2. FUROSEMIDE [Concomitant]
     Active Substance: FUROSEMIDE
     Indication: Product used for unknown indication
     Dosage: 1 DF, 1X
     Route: 065
  3. VIDISIC CARBOGEL EDO [Concomitant]
     Indication: Product used for unknown indication
     Dosage: UNK
     Route: 065
  4. PANTOPRAZOLE SODIUM [Concomitant]
     Active Substance: PANTOPRAZOLE SODIUM
     Indication: Product used for unknown indication
     Dosage: 40 MG, BID(2 X 1)
     Route: 065
  5. CHOLECALCIFEROL [Concomitant]
     Active Substance: CHOLECALCIFEROL
     Indication: Product used for unknown indication
     Dosage: 5600 IU, WE(1X WEEK 1 CAPS)
     Route: 065
  6. PREVALIN NASAL SPRAY (CROMOGLICIC ACID) [Concomitant]
     Indication: Product used for unknown indication
     Dosage: 1 GTT(2-5 SPRAYS IN THE NOSE)
     Route: 065
  7. EUTHYROX [Concomitant]
     Active Substance: LEVOTHYROXINE SODIUM
     Indication: Product used for unknown indication
     Dosage: UNK
     Route: 065
  8. AERIUS (DESLORATADINE) [Concomitant]
     Active Substance: DESLORATADINE
     Indication: Product used for unknown indication
     Dosage: 5 MG, BID(2 X 1)
     Route: 065
  9. IRBESARTAN [Concomitant]
     Active Substance: IRBESARTAN
     Indication: Product used for unknown indication
     Dosage: 112.5 MG, 24D(1X 1.5 TABLET)
     Route: 065

REACTIONS (3)
  - Pelvic fracture [Not Recovered/Not Resolved]
  - Fall [Not Recovered/Not Resolved]
  - Head discomfort [Unknown]

NARRATIVE: CASE EVENT DATE: 20230119
